FAERS Safety Report 7676877-3 (Version None)
Quarter: 2011Q3

REPORT INFORMATION
  Report Type: 
  Country: None (occurrence: None)
  Receive Date: 20110811
  Receipt Date: 20110729
  Transmission Date: 20111222
  Serious: Yes (Hospitalization)
  Sender: FDA-Public Use
  Company Number: PHHY2011MX68894

PATIENT
  Age: 86 Year
  Sex: Male

DRUGS (3)
  1. ZYLOPRIM [Concomitant]
     Dosage: UNK UKN, UNK
     Dates: start: 20110601
  2. DIOVAN HCT [Suspect]
     Indication: HYPERTENSION
     Dosage: 1 TABLET (160/12.5  MG) PER DAY
     Dates: start: 20090701, end: 20110701
  3. LASIX [Concomitant]
     Dosage: 1 DF, UNK

REACTIONS (2)
  - CARDIAC DISORDER [None]
  - HEART RATE IRREGULAR [None]
